FAERS Safety Report 7002104-6 (Version None)
Quarter: 2010Q3

REPORT INFORMATION
  Report Type: 
  Country: None (occurrence: None)
  Receive Date: 20100920
  Receipt Date: 20070806
  Transmission Date: 20110219
  Serious: Yes (Hospitalization, Other)
  Sender: FDA-Public Use
  Company Number: US-ASTRAZENECA-2006UW25988

PATIENT
  Age: 47 Year
  Sex: Female

DRUGS (12)
  1. SEROQUEL [Suspect]
     Indication: ANXIETY
     Dosage: 25-200 MG
     Route: 048
     Dates: start: 19981116
  2. SEROQUEL [Suspect]
     Indication: DEPRESSION
     Dosage: 25-200 MG
     Route: 048
     Dates: start: 19981116
  3. SEROQUEL [Suspect]
     Indication: SCHIZOPHRENIA
     Dosage: 25-200 MG
     Route: 048
     Dates: start: 19981116
  4. RISPERDAL [Concomitant]
     Indication: ANXIETY
     Dosage: 1-2 MG
     Dates: start: 19981116
  5. RISPERDAL [Concomitant]
     Indication: DEPRESSION
     Dosage: 1-2 MG
     Dates: start: 19981116
  6. LIPITOR [Concomitant]
     Dates: start: 20060321
  7. LISINOPRIL [Concomitant]
     Indication: BLOOD PRESSURE
     Dates: start: 20060321
  8. DEPAKOTE [Concomitant]
     Indication: ANXIETY
     Route: 048
     Dates: start: 19981116
  9. DEPAKOTE [Concomitant]
     Indication: DEPRESSION
     Route: 048
     Dates: start: 19981116
  10. LORAZEPAM [Concomitant]
     Indication: ANXIETY
     Dosage: 1 TAB PRN
     Dates: start: 19981125
  11. ASPIRIN [Concomitant]
     Dates: start: 20060321
  12. HYDROCHLOROTHIAZIDE [Concomitant]
     Route: 048
     Dates: start: 20060317

REACTIONS (3)
  - DIABETES MELLITUS [None]
  - PANCREATITIS [None]
  - TYPE 2 DIABETES MELLITUS [None]
